FAERS Safety Report 7992000-X (Version None)
Quarter: 2011Q4

REPORT INFORMATION
  Report Type: 
  Country: None (occurrence: None)
  Receive Date: 20111219
  Receipt Date: 20110218
  Transmission Date: 20120403
  Serious: No
  Sender: FDA-Public Use
  Company Number: US-ASTRAZENECA-2011SE09450

PATIENT
  Sex: Female
  Weight: 83.9 kg

DRUGS (12)
  1. CRESTOR [Suspect]
     Indication: HYPERCHOLESTEROLAEMIA
     Route: 048
  2. METOPROLOL TARTRATE [Concomitant]
  3. PEROXATINE [Concomitant]
     Indication: BIPOLAR DISORDER
  4. MAGNESIUM [Concomitant]
     Indication: NERVOUS SYSTEM DISORDER
  5. ZETIA [Concomitant]
     Indication: HYPERCHOLESTEROLAEMIA
  6. GENERIC ANTIDEPRESSANT [Concomitant]
     Indication: DEPRESSION
  7. LISINOPRIL [Concomitant]
     Indication: CARDIAC DISORDER
  8. NIACIN [Concomitant]
  9. ASPIRIN [Concomitant]
  10. CALCIUM [Concomitant]
     Indication: BONE DISORDER
  11. VITAMIN C [Concomitant]
     Indication: PROPHYLAXIS
  12. GLUCOSAMINE [Concomitant]
     Indication: ARTHRALGIA

REACTIONS (1)
  - PAIN [None]
